FAERS Safety Report 10476427 (Version 2)
Quarter: 2014Q4

REPORT INFORMATION
  Report Type: Spontaneous
  Country: US (occurrence: US)
  Receive Date: 20140925
  Receipt Date: 20141027
  Transmission Date: 20150528
  Serious: Yes (Hospitalization)
  Sender: FDA-Public Use
  Company Number: US-ACTELION-A-US2014-105446

PATIENT
  Age: 27 Year
  Sex: Female

DRUGS (2)
  1. VELETRI [Suspect]
     Active Substance: EPOPROSTENOL
     Dosage: 18.75 NG/KG, PER MIN
     Route: 041
  2. VELETRI [Suspect]
     Active Substance: EPOPROSTENOL
     Indication: PULMONARY ARTERIAL HYPERTENSION
     Dosage: 18 NG/KG, PER MIN
     Route: 048
     Dates: start: 20140514

REACTIONS (10)
  - Seizure [Unknown]
  - Pharyngeal oedema [Unknown]
  - Ear pruritus [Unknown]
  - Catheter site rash [Unknown]
  - Swelling face [Not Recovered/Not Resolved]
  - Rash pruritic [Unknown]
  - Rash erythematous [Unknown]
  - Swollen tongue [Unknown]
  - Dermatitis contact [Unknown]
  - Dyspepsia [Unknown]

NARRATIVE: CASE EVENT DATE: 20140913
